FAERS Safety Report 20204977 (Version 1)
Quarter: 2021Q4

REPORT INFORMATION
  Report Type: Spontaneous
  Country: US (occurrence: US)
  Receive Date: 20211220
  Receipt Date: 20211220
  Transmission Date: 20220303
  Serious: No
  Sender: FDA-Public Use
  Company Number: US-AUROBINDO-AUR-APL-2021-028126

PATIENT
  Sex: Female

DRUGS (3)
  1. TRI-LO-MILI [Suspect]
     Active Substance: ETHINYL ESTRADIOL\NORGESTIMATE
     Indication: Contraception
     Dosage: UNK, ONCE A DAY
     Route: 065
  2. TRI-LO-MILI [Suspect]
     Active Substance: ETHINYL ESTRADIOL\NORGESTIMATE
     Indication: Contraception
     Dosage: UNK, ONCE A DAY
     Route: 065
  3. TRI-LO-MILI [Suspect]
     Active Substance: ETHINYL ESTRADIOL\NORGESTIMATE
     Indication: Contraception
     Dosage: UNK, ONCE A DAY
     Route: 065

REACTIONS (1)
  - Incorrect dose administered [Unknown]
